FAERS Safety Report 23390646 (Version 1)
Quarter: 2024Q1

REPORT INFORMATION
  Report Type: Spontaneous
  Country: US (occurrence: US)
  Receive Date: 20240111
  Receipt Date: 20240111
  Transmission Date: 20240410
  Serious: No
  Sender: FDA-Public Use
  Company Number: US-002147023-NVSC2024US005613

PATIENT
  Age: 74 Year
  Sex: Female

DRUGS (1)
  1. LEQVIO [Suspect]
     Active Substance: INCLISIRAN SODIUM
     Indication: Hyperlipidaemia
     Dosage: UNK (EVERY 6 MONTHS)
     Route: 065
     Dates: start: 20230901

REACTIONS (1)
  - Myalgia [Recovered/Resolved with Sequelae]

NARRATIVE: CASE EVENT DATE: 20230901
